FAERS Safety Report 13641234 (Version 1)
Quarter: 2017Q2

REPORT INFORMATION
  Report Type: Spontaneous
  Country: CZ (occurrence: CZ)
  Receive Date: 20170612
  Receipt Date: 20170612
  Transmission Date: 20170830
  Serious: Yes (Hospitalization, Other)
  Sender: FDA-Public Use
  Company Number: CZ-ACCORD-052374

PATIENT
  Age: 7 Year
  Sex: Male

DRUGS (5)
  1. ALEMTUZUMAB [Suspect]
     Active Substance: ALEMTUZUMAB
     Indication: RASMUSSEN ENCEPHALITIS
     Dosage: TOTAL DOSE OF 0.75 MG/KG FOR 3 CONSECUTIVE DAYS
     Route: 042
  2. TACROLIMUS. [Suspect]
     Active Substance: TACROLIMUS
     Indication: RASMUSSEN ENCEPHALITIS
  3. RITUXIMAB [Concomitant]
     Active Substance: RITUXIMAB
  4. METHYLPREDNISOLONE. [Concomitant]
     Active Substance: METHYLPREDNISOLONE
     Route: 042
  5. METHOTREXATE. [Suspect]
     Active Substance: METHOTREXATE
     Indication: RASMUSSEN ENCEPHALITIS
     Dosage: 12 MG FOR A SINGLE DOSE
     Route: 037

REACTIONS (5)
  - Treatment failure [Unknown]
  - Adverse reaction [Unknown]
  - Off label use [Unknown]
  - Hyperpyrexia [Unknown]
  - Lymphopenia [Unknown]
